FAERS Safety Report 7305506-3 (Version None)
Quarter: 2011Q1

REPORT INFORMATION
  Report Type: 
  Country: None (occurrence: None)
  Receive Date: 20110222
  Receipt Date: 20110127
  Transmission Date: 20110831
  Serious: No
  Sender: FDA-Public Use
  Company Number: US-B.I. PHARMACEUTICALS,INC./RIDGEFIELD-2011-BP-01089BP

PATIENT
  Age: 83 Year
  Sex: Female

DRUGS (9)
  1. WARFARIN [Concomitant]
     Indication: ATRIAL FIBRILLATION
  2. METOPROLOL [Concomitant]
     Indication: HYPERTENSION
  3. GLIPIZIDE [Concomitant]
     Indication: DIABETES MELLITUS
  4. PRADAXA [Suspect]
     Indication: CEREBROVASCULAR ACCIDENT PROPHYLAXIS
  5. ASA [Concomitant]
     Indication: PROPHYLAXIS
     Dosage: 81 MG
  6. LISINOPRIL [Concomitant]
     Indication: BLOOD PRESSURE
  7. PRADAXA [Suspect]
     Indication: ATRIAL FIBRILLATION
     Dosage: 300 MG
     Route: 048
     Dates: start: 20110103
  8. CHOLESTEROL MEDS [Concomitant]
     Indication: BLOOD CHOLESTEROL INCREASED
  9. PROTONIX [Concomitant]
     Indication: GASTROOESOPHAGEAL REFLUX DISEASE

REACTIONS (3)
  - CHROMATURIA [None]
  - BREAST PAIN [None]
  - FAECES DISCOLOURED [None]
